FAERS Safety Report 7148840-2 (Version None)
Quarter: 2010Q4

REPORT INFORMATION
  Report Type: 
  Country: None (occurrence: None)
  Receive Date: 20101209
  Receipt Date: 20101206
  Transmission Date: 20110411
  Serious: Yes (Death, Hospitalization)
  Sender: FDA-Public Use
  Company Number: PHHY2010US82276

PATIENT
  Sex: Female

DRUGS (1)
  1. NEORAL [Suspect]
     Indication: LIVER TRANSPLANT
     Dosage: 125 MG, BID
     Route: 048
     Dates: start: 20100903

REACTIONS (4)
  - CHRONIC HEPATIC FAILURE [None]
  - GASTROINTESTINAL HAEMORRHAGE [None]
  - HEPATIC CIRRHOSIS [None]
  - LIVER TRANSPLANT REJECTION [None]
